FAERS Safety Report 19056156 (Version 38)
Quarter: 2025Q1

REPORT INFORMATION
  Report Type: Report from Study
  Country: US (occurrence: US)
  Receive Date: 20210325
  Receipt Date: 20250203
  Transmission Date: 20250408
  Serious: Yes (Hospitalization, Other)
  Sender: TAKEDA
  Company Number: US-TAKEDA-US202018779

PATIENT
  Age: 24 Year
  Sex: Male
  Weight: 19 kg

DRUGS (43)
  1. IDURSULFASE [Suspect]
     Active Substance: IDURSULFASE
     Indication: Mucopolysaccharidosis II
     Dosage: 18 MILLIGRAM, 1/WEEK
     Dates: start: 20100222
  2. IDURSULFASE [Suspect]
     Active Substance: IDURSULFASE
     Indication: Mucopolysaccharidosis
     Dosage: 12 MILLIGRAM, 1/WEEK
  3. IDURSULFASE [Suspect]
     Active Substance: IDURSULFASE
     Dosage: 18 MILLIGRAM, 1/WEEK
     Dates: start: 20100401
  4. IDURSULFASE [Suspect]
     Active Substance: IDURSULFASE
     Dosage: 18 MILLIGRAM, 1/WEEK
  5. IDURSULFASE [Suspect]
     Active Substance: IDURSULFASE
     Dosage: 12 MILLIGRAM, 1/WEEK
  6. ERYTHROMYCIN [Concomitant]
     Active Substance: ERYTHROMYCIN
  7. OXYGEN [Concomitant]
     Active Substance: OXYGEN
  8. AZELASTINE HYDROCHLORIDE [Concomitant]
     Active Substance: AZELASTINE HYDROCHLORIDE
     Indication: Product used for unknown indication
  9. GUAIFENESIN [Concomitant]
     Active Substance: GUAIFENESIN
  10. BACLOFEN [Concomitant]
     Active Substance: BACLOFEN
  11. BEANO [Concomitant]
     Active Substance: ASPERGILLUS NIGER .ALPHA.-GALACTOSIDASE
  12. KEPPRA [Concomitant]
     Active Substance: LEVETIRACETAM
  13. CETIRIZINE HCL [Concomitant]
     Active Substance: CETIRIZINE HYDROCHLORIDE
  14. TUMS [Concomitant]
     Active Substance: CALCIUM CARBONATE
  15. OXCARBAZEPINE [Concomitant]
     Active Substance: OXCARBAZEPINE
  16. HEPARIN [Concomitant]
     Active Substance: HEPARIN SODIUM
  17. LIDOCAINE\PRILOCAINE [Concomitant]
     Active Substance: LIDOCAINE\PRILOCAINE
  18. SODIUM CHLORIDE [Concomitant]
     Active Substance: SODIUM CHLORIDE
  19. EPINEPHRINE [Concomitant]
     Active Substance: EPINEPHRINE
  20. ALBUTEROL SULFATE [Concomitant]
     Active Substance: ALBUTEROL SULFATE
  21. LEVETIRACETAM [Concomitant]
     Active Substance: LEVETIRACETAM
  22. DIAZEPAM [Concomitant]
     Active Substance: DIAZEPAM
  23. VITAMIN D3 [Concomitant]
     Active Substance: CHOLECALCIFEROL
  24. MIRALAX [Concomitant]
     Active Substance: POLYETHYLENE GLYCOL 3350
  25. TRIAMCINOLONE [Concomitant]
     Active Substance: TRIAMCINOLONE
  26. TYLENOL EXTRA STRENGTH [Concomitant]
     Active Substance: ACETAMINOPHEN
  27. PREDNISONE [Concomitant]
     Active Substance: PREDNISONE
  28. FLUTICASONE PROPIONATE [Concomitant]
     Active Substance: FLUTICASONE PROPIONATE
  29. LACTULOSE [Concomitant]
     Active Substance: LACTULOSE
  30. LANSOPRAZOLE [Concomitant]
     Active Substance: LANSOPRAZOLE
  31. IBUPROFEN [Concomitant]
     Active Substance: IBUPROFEN
  32. SODIUM CHLORIDE [Concomitant]
     Active Substance: SODIUM CHLORIDE
  33. FAMOTIDINE [Concomitant]
     Active Substance: FAMOTIDINE
  34. SENNA-S [Concomitant]
     Active Substance: DOCUSATE SODIUM\SENNOSIDES
  35. SOLU-MEDROL [Concomitant]
     Active Substance: METHYLPREDNISOLONE SODIUM SUCCINATE
  36. DULERA [Concomitant]
     Active Substance: FORMOTEROL FUMARATE DIHYDRATE\MOMETASONE FUROATE
  37. ALBUTEROL [Concomitant]
     Active Substance: ALBUTEROL
  38. CETIRIZINE [Concomitant]
     Active Substance: CETIRIZINE HYDROCHLORIDE
  39. LIDOCAINE [Concomitant]
     Active Substance: LIDOCAINE
  40. FLUTICASONE [Concomitant]
     Active Substance: FLUTICASONE
  41. AZELASTINE [Concomitant]
     Active Substance: AZELASTINE
  42. DIPHENHYDRAMINE HYDROCHLORIDE [Concomitant]
     Active Substance: DIPHENHYDRAMINE HYDROCHLORIDE
  43. DIPHENHYDRAMINE [Concomitant]
     Active Substance: DIPHENHYDRAMINE

REACTIONS (27)
  - Respiratory tract infection [Unknown]
  - Pleural effusion [Unknown]
  - Lower limb fracture [Unknown]
  - Device issue [Unknown]
  - Seizure [Unknown]
  - Pneumonia [Unknown]
  - Drug hypersensitivity [Unknown]
  - Product dose omission issue [Unknown]
  - Urinary tract infection [Unknown]
  - Pharyngitis streptococcal [Unknown]
  - Nasopharyngitis [Unknown]
  - Obstruction [Unknown]
  - Productive cough [Unknown]
  - Body temperature increased [Unknown]
  - Muscle twitching [Unknown]
  - Decubitus ulcer [Unknown]
  - Malaise [Unknown]
  - Peripheral swelling [Unknown]
  - Infusion site extravasation [Unknown]
  - Catheter site swelling [Unknown]
  - Cough [Unknown]
  - Pyrexia [Unknown]
  - Infusion related reaction [Unknown]
  - Rash [Unknown]
  - Urticaria [Unknown]
  - Flushing [Unknown]
  - Erythema [Unknown]

NARRATIVE: CASE EVENT DATE: 20210616
